FAERS Safety Report 7679236-2 (Version None)
Quarter: 2011Q3

REPORT INFORMATION
  Report Type: 
  Country: None (occurrence: None)
  Receive Date: 20110812
  Receipt Date: 20110801
  Transmission Date: 20111222
  Serious: Yes (Other)
  Sender: FDA-Public Use
  Company Number: US-RANBAXY-2011RR-46694

PATIENT
  Sex: Male

DRUGS (13)
  1. CIPROFLOXACIN [Suspect]
     Dosage: UNK
     Route: 065
     Dates: start: 20081001
  2. LEVAQUIN [Suspect]
     Dosage: 500-750 MG/DAY
     Route: 065
     Dates: start: 20070820
  3. LEVAQUIN [Suspect]
     Dosage: 500-750 MG/DAY
     Route: 065
     Dates: start: 20071022
  4. LEVAQUIN [Suspect]
  5. LEVAQUIN [Suspect]
     Dosage: 500-750 MG/DAY
     Route: 065
     Dates: start: 20070926
  6. LEVAQUIN [Suspect]
     Dosage: 500-750 MG/DAY
     Route: 065
     Dates: start: 20071217
  7. LEVAQUIN [Suspect]
     Indication: RESPIRATORY TRACT INFECTION
     Dosage: 500-750 MG/DAY
     Route: 065
     Dates: start: 20090129
  8. LEVAQUIN [Suspect]
     Dosage: 500-750 MG/DAY
     Route: 065
     Dates: start: 20061228
  9. LEVAQUIN [Suspect]
     Dosage: UNK
     Route: 048
     Dates: start: 20090101
  10. CIPROFLOXACIN [Suspect]
     Indication: SINUSITIS
     Dosage: UNK
     Route: 065
     Dates: start: 20080801
  11. LEVAQUIN [Suspect]
     Indication: URINARY TRACT INFECTION
     Dosage: 500-750 MG/DAY
     Route: 065
     Dates: start: 20090526
  12. LEVAQUIN [Suspect]
     Dosage: 500-750 MG/DAY
     Route: 065
     Dates: start: 20071012
  13. LEVAQUIN [Suspect]
     Dosage: 500-750 MG/DAY
     Route: 065
     Dates: start: 20080623

REACTIONS (2)
  - TENDON RUPTURE [None]
  - ROTATOR CUFF SYNDROME [None]
